FAERS Safety Report 8064226-0 (Version None)
Quarter: 2012Q1

REPORT INFORMATION
  Report Type: 
  Country: None (occurrence: None)
  Receive Date: 20120123
  Receipt Date: 20120117
  Transmission Date: 20120608
  Serious: No
  Sender: FDA-Public Use
  Company Number: US-PFIZER INC-2012014542

PATIENT
  Sex: Female

DRUGS (1)
  1. PEDIATRIC ADVIL [Suspect]
     Indication: PYREXIA
     Dosage: UNK
     Route: 048
     Dates: start: 20120117, end: 20120118

REACTIONS (3)
  - EYE DISORDER [None]
  - EYE SWELLING [None]
  - SOMNOLENCE [None]
